FAERS Safety Report 6300464-2 (Version None)
Quarter: 2009Q3

REPORT INFORMATION
  Report Type: 
  Country: None (occurrence: None)
  Receive Date: 20090803
  Receipt Date: 20090720
  Transmission Date: 20100115
  Serious: Yes (Death, Hospitalization)
  Sender: FDA-Public Use
  Company Number: ADR10082009

PATIENT
  Age: 75 Year
  Sex: Male

DRUGS (4)
  1. AMLODIPINE [Suspect]
     Indication: HYPERTENSION
     Dosage: 1000 MG
  2. SATOLOL [Concomitant]
  3. ASPIRIN [Concomitant]
  4. PARACETAMOL [Concomitant]

REACTIONS (3)
  - ATRIOVENTRICULAR BLOCK FIRST DEGREE [None]
  - HYPOTENSION [None]
  - OVERDOSE [None]
